FAERS Safety Report 23022120 (Version 1)
Quarter: 2023Q4

REPORT INFORMATION
  Report Type: Spontaneous
  Country: US (occurrence: None)
  Receive Date: 20231003
  Receipt Date: 20231003
  Transmission Date: 20240109
  Serious: No
  Sender: FDA-Public Use
  Company Number: None

PATIENT
  Sex: Male

DRUGS (2)
  1. TRIENTINE HYDROCHLORIDE [Suspect]
     Active Substance: TRIENTINE HYDROCHLORIDE
     Indication: Mineral metabolism disorder
     Dosage: DOSE/FREQUENCY: TAKE 1 CAPSULE BY MOUTH IN THE MORNING AND 2 CAPSULES AT BEDTIME.?
     Route: 048
     Dates: start: 202108
  2. TRIENTINE HYDROCHLORIDE [Suspect]
     Active Substance: TRIENTINE HYDROCHLORIDE
     Dosage: OTHER FREQUENCY : BEDTIME;?
     Route: 048

REACTIONS (2)
  - Product storage error [None]
  - Therapy interrupted [None]
